FAERS Safety Report 26195104 (Version 1)
Quarter: 2025Q4

REPORT INFORMATION
  Report Type: Spontaneous
  Country: AU (occurrence: AU)
  Receive Date: 20251224
  Receipt Date: 20251224
  Transmission Date: 20260119
  Serious: Yes (Other)
  Sender: BAUSCH AND LOMB
  Company Number: AU-BAUSCHBL-2025BNL033947

PATIENT
  Age: 82 Year
  Sex: Male

DRUGS (3)
  1. PREDNISOLONE [Suspect]
     Active Substance: PREDNISOLONE
     Indication: Product used for unknown indication
     Dosage: HIGH-DOSE THERAPY
     Route: 065
  2. DOXYCYCLINE [Concomitant]
     Active Substance: DOXYCYCLINE
  3. NICOTINAMIDE [CUPRIC OXIDE;FOLIC ACID;NICOTINIC ACID;ZINC OXIDE] [Concomitant]

REACTIONS (1)
  - Skin ulcer [Unknown]
